FAERS Safety Report 18944892 (Version 1)
Quarter: 2021Q1

REPORT INFORMATION
  Report Type: Spontaneous
  Country: US (occurrence: US)
  Receive Date: 20210226
  Receipt Date: 20210226
  Transmission Date: 20210420
  Serious: No
  Sender: FDA-Public Use
  Company Number: None

PATIENT
  Age: 59 Year
  Sex: Male
  Weight: 83.25 kg

DRUGS (1)
  1. XIIDRA [Suspect]
     Active Substance: LIFITEGRAST
     Indication: DRY EYE
     Dosage: ?          QUANTITY:1 DROP(S);?
     Route: 047
     Dates: start: 20210225, end: 20210225

REACTIONS (6)
  - Headache [None]
  - Pain [None]
  - Eye irritation [None]
  - Eye pain [None]
  - Insomnia [None]
  - Vision blurred [None]

NARRATIVE: CASE EVENT DATE: 20210225
